FAERS Safety Report 16728376 (Version 2)
Quarter: 2019Q3

REPORT INFORMATION
  Report Type: Report from Study
  Country: US (occurrence: US)
  Receive Date: 20190822
  Receipt Date: 20190828
  Transmission Date: 20191005
  Serious: Yes (Other)
  Sender: FDA-Public Use
  Company Number: US-BIOGEN-2019BI00776710

PATIENT
  Age: 11 Year
  Sex: Male

DRUGS (1)
  1. SPINRAZA [Suspect]
     Active Substance: NUSINERSEN
     Indication: SPINAL MUSCULAR ATROPHY
     Route: 037
     Dates: start: 20170830

REACTIONS (2)
  - Brain oedema [Recovered/Resolved]
  - Noninfective encephalitis [Unknown]

NARRATIVE: CASE EVENT DATE: 20190814
